FAERS Safety Report 7554891-6 (Version None)
Quarter: 2011Q2

REPORT INFORMATION
  Report Type: 
  Country: None (occurrence: None)
  Receive Date: 20110617
  Receipt Date: 20110609
  Transmission Date: 20111010
  Serious: Yes (Death, Hospitalization, Other)
  Sender: FDA-Public Use
  Company Number: FR-CUBIST-2011S1000191

PATIENT
  Age: 50 Year
  Sex: Male

DRUGS (8)
  1. OXACILLIN [Concomitant]
     Indication: PRODUCT USED FOR UNKNOWN INDICATION
     Route: 065
     Dates: start: 20110102, end: 20110103
  2. CUBICIN [Suspect]
     Indication: ENDOCARDITIS
     Route: 042
     Dates: start: 20110103, end: 20110103
  3. RIFAMYCIN [Concomitant]
     Indication: PRODUCT USED FOR UNKNOWN INDICATION
     Route: 065
     Dates: start: 20110102, end: 20110103
  4. GENTAMICIN [Concomitant]
     Indication: PRODUCT USED FOR UNKNOWN INDICATION
     Route: 065
  5. CUBICIN [Suspect]
     Indication: INFECTION
     Route: 042
     Dates: start: 20110103, end: 20110103
  6. VANCOMYCIN [Concomitant]
     Indication: PRODUCT USED FOR UNKNOWN INDICATION
     Route: 065
     Dates: start: 20110103, end: 20110103
  7. CLINDAMYCIN PHOSPHATE [Concomitant]
     Indication: PRODUCT USED FOR UNKNOWN INDICATION
     Route: 065
     Dates: start: 20110102, end: 20110103
  8. HYDROCORTISONE [Concomitant]
     Indication: PRODUCT USED FOR UNKNOWN INDICATION
     Route: 065
     Dates: start: 20110102, end: 20110103

REACTIONS (8)
  - COAGULOPATHY [None]
  - ACUTE RESPIRATORY DISTRESS SYNDROME [None]
  - HEPATIC FUNCTION ABNORMAL [None]
  - CONCOMITANT DISEASE AGGRAVATED [None]
  - DRUG INEFFECTIVE [None]
  - NECROSIS [None]
  - HYPERGLYCAEMIA [None]
  - RENAL FAILURE [None]
